FAERS Safety Report 7478087-1 (Version None)
Quarter: 2011Q2

REPORT INFORMATION
  Report Type: 
  Country: None (occurrence: None)
  Receive Date: 20110513
  Receipt Date: 20110124
  Transmission Date: 20111010
  Serious: Yes (Hospitalization, Other)
  Sender: FDA-Public Use
  Company Number: US-BAYER-201036504NA

PATIENT
  Age: 17 Year
  Sex: Female
  Weight: 57 kg

DRUGS (7)
  1. LOESTRIN 1.5/30 [Concomitant]
     Dosage: UNK
     Dates: start: 20070101
  2. VACCINES [Concomitant]
     Indication: PROPHYLAXIS
     Dates: start: 20080107, end: 20080107
  3. VACCINES [Concomitant]
     Dates: start: 20080321, end: 20080321
  4. VACCINES [Concomitant]
     Dates: start: 20080721, end: 20080721
  5. IBUPROFEN [Concomitant]
  6. YAZ [Suspect]
     Dosage: UNK
     Dates: start: 20060901, end: 20080301
  7. ANTIBIOTICS [Concomitant]

REACTIONS (6)
  - CHOLECYSTITIS CHRONIC [None]
  - PAIN [None]
  - GASTRITIS [None]
  - CHOLELITHIASIS [None]
  - GASTROINTESTINAL DISORDER [None]
  - DIARRHOEA [None]
